FAERS Safety Report 8515272 (Version 2)
Quarter: 2013Q4

REPORT INFORMATION
  Report Type: Spontaneous
  Country: AU (occurrence: AU)
  Receive Date: 20120417
  Receipt Date: 20131223
  Transmission Date: 20140711
  Serious: Yes (Hospitalization, Other)
  Sender: FDA-Public Use
  Company Number: AU-JNJFOC-20110708486

PATIENT
  Sex: Female

DRUGS (3)
  1. XARELTO [Suspect]
     Indication: HIP ARTHROPLASTY
     Route: 065
     Dates: start: 201102, end: 201102
  2. XARELTO [Suspect]
     Indication: THROMBOSIS PROPHYLAXIS
     Route: 065
     Dates: start: 201102, end: 201102
  3. DALTEPARIN [Concomitant]
     Indication: HIP ARTHROPLASTY
     Dates: start: 20110222

REACTIONS (2)
  - Adrenal haemorrhage [Recovered/Resolved]
  - Heparin-induced thrombocytopenia [Unknown]
